FAERS Safety Report 25620564 (Version 2)
Quarter: 2025Q3

REPORT INFORMATION
  Report Type: Report from Study
  Country: CN (occurrence: CN)
  Receive Date: 20250730
  Receipt Date: 20250811
  Transmission Date: 20251021
  Serious: Yes (Hospitalization)
  Sender: CSL BEHRING
  Company Number: CN-BEH-2025214335

PATIENT
  Age: 43 Year
  Sex: Male
  Weight: 62.5 kg

DRUGS (3)
  1. VELPHORO [Suspect]
     Active Substance: SUCROFERRIC OXYHYDROXIDE
     Indication: Hyperphosphataemia
     Dosage: 0.5 G, TID
     Route: 048
     Dates: start: 20250705, end: 202507
  2. NIFEDIPINE [Concomitant]
     Active Substance: NIFEDIPINE
     Indication: Hypertension
     Dosage: 30 MG, QD
  3. SEVELAMER CARBONATE [Concomitant]
     Active Substance: SEVELAMER CARBONATE
     Indication: Azotaemia
     Dosage: 800 MG, BID

REACTIONS (3)
  - Pneumonia [Recovered/Resolved]
  - Chest pain [Recovered/Resolved]
  - Productive cough [Recovered/Resolved]

NARRATIVE: CASE EVENT DATE: 20250701
